FAERS Safety Report 5388906-0 (Version None)
Quarter: 2007Q3

REPORT INFORMATION
  Report Type: 
  Country: None (occurrence: None)
  Receive Date: 20070717
  Receipt Date: 20070712
  Transmission Date: 20080115
  Serious: Yes (Hospitalization, Other)
  Sender: FDA-Public Use
  Company Number: GB9402921JAN2003

PATIENT
  Sex: Female
  Weight: 64.95 kg

DRUGS (18)
  1. RAPAMUNE [Suspect]
     Indication: RENAL TRANSPLANT
     Route: 048
     Dates: start: 20021202, end: 20030116
  2. RAPAMUNE [Interacting]
     Indication: IMMUNOSUPPRESSION
  3. CEPHALEXIN [Concomitant]
     Indication: PRODUCTIVE COUGH
     Dosage: UNKNOWN
     Dates: start: 20021212, end: 20021219
  4. CEFUROXIME [Concomitant]
     Indication: LOWER RESPIRATORY TRACT INFECTION
     Dosage: UNKNOWN
     Dates: start: 20021225, end: 20021226
  5. ERYTHROMYCIN [Interacting]
     Indication: LOWER RESPIRATORY TRACT INFECTION
     Dosage: UNKNOWN
     Dates: start: 20021225, end: 20021226
  6. ERYTHROMYCIN [Interacting]
     Dosage: UNKNOWN
     Dates: start: 20020103, end: 20030106
  7. FRUSEMIDE [Concomitant]
     Indication: DIURETIC THERAPY
     Dosage: UNKNOWN
     Dates: start: 20021225, end: 20021230
  8. TUMS [Concomitant]
     Indication: CALCIUM DEFICIENCY
     Dosage: UNKNOWN
     Dates: start: 20021218, end: 20021231
  9. CLONAZEPAM [Concomitant]
     Indication: PAIN
     Dosage: UNKNOWN
     Dates: start: 20021225
  10. SENNA [Concomitant]
     Indication: CONSTIPATION
     Dosage: UNKNOWN
     Dates: start: 20021225
  11. LACTULOSE [Concomitant]
     Indication: CONSTIPATION
     Dosage: UNKNOWN
     Dates: start: 20021225
  12. CIPROFLOXACIN [Concomitant]
     Indication: LOWER RESPIRATORY TRACT INFECTION
     Dosage: UNKNOWN
     Dates: start: 20030106, end: 20030115
  13. SANDOCAL [Concomitant]
     Indication: CALCIUM DEFICIENCY
     Dosage: UNKNOWN
     Dates: start: 20021231
  14. TRIMETHOPRIM [Concomitant]
     Indication: URINARY TRACT INFECTION
     Dosage: UNKNOWN
     Dates: start: 20021201, end: 20030101
  15. PREDNISOLONE [Concomitant]
     Dates: start: 20020515
  16. MYCOPHENOLATE MOFETIL [Concomitant]
     Dates: start: 20020322
  17. AMOXIL [Concomitant]
     Indication: LOWER RESPIRATORY TRACT INFECTION
     Dosage: UNKNOWN
     Dates: start: 20021125, end: 20021201
  18. AMOXIL [Concomitant]
     Dosage: UNKNOWN
     Dates: start: 20021227, end: 20030105

REACTIONS (4)
  - DRUG INTERACTION [None]
  - DRUG LEVEL INCREASED [None]
  - FOCAL GLOMERULOSCLEROSIS [None]
  - PNEUMONIA [None]
